FAERS Safety Report 6209050-6 (Version None)
Quarter: 2009Q2

REPORT INFORMATION
  Report Type: 
  Country: None (occurrence: None)
  Receive Date: 20090529
  Receipt Date: 20090526
  Transmission Date: 20091009
  Serious: Yes (Hospitalization)
  Sender: FDA-Public Use
  Company Number: US-BIOGENIDEC-2008BI027305

PATIENT
  Age: 37 Year
  Sex: Female
  Weight: 58 kg

DRUGS (19)
  1. TYSABRI [Suspect]
     Indication: MULTIPLE SCLEROSIS
     Route: 042
     Dates: start: 20080418
  2. IPRATROPIUM BROMIDE [Concomitant]
     Indication: BRONCHOSPASM
     Route: 055
     Dates: start: 20080801
  3. ALBUTEROL [Concomitant]
     Indication: BRONCHOSPASM
     Route: 055
     Dates: start: 20080801
  4. COUMADIN [Concomitant]
     Indication: THROMBOSIS PROPHYLAXIS
     Route: 048
     Dates: start: 20080801
  5. SILVADENE [Concomitant]
     Indication: DECUBITUS ULCER
     Route: 061
     Dates: start: 20080801
  6. DOCUSATE SODIUM [Concomitant]
     Indication: CONSTIPATION
     Route: 048
     Dates: start: 20080801
  7. LEVAQUIN [Concomitant]
     Indication: URINARY TRACT INFECTION
     Route: 048
     Dates: start: 20080808, end: 20080814
  8. BACLOFEN [Concomitant]
     Indication: MUSCLE SPASTICITY
     Route: 037
     Dates: start: 19970101
  9. OXYBUTYNIN [Concomitant]
     Indication: HYPERTONIC BLADDER
     Route: 048
     Dates: start: 20070201
  10. LORTAB [Concomitant]
     Indication: PAIN
     Route: 048
     Dates: start: 20070201
  11. PREGABALIN [Concomitant]
     Indication: PARTIAL SEIZURES
     Route: 048
     Dates: start: 20080310
  12. METHYLPHENIDATE HCL [Concomitant]
     Indication: FATIGUE
     Route: 048
     Dates: start: 20051101
  13. ALPRAZOLAM [Concomitant]
     Indication: ANXIETY
     Route: 048
     Dates: start: 20050201
  14. TIZANIDINE HCL [Concomitant]
     Indication: MUSCLE SPASTICITY
     Route: 048
     Dates: start: 20070201
  15. PAROXETINE HCL [Concomitant]
     Indication: DEPRESSION
     Route: 048
     Dates: start: 20051101
  16. AMBIEN [Concomitant]
     Route: 048
  17. DITROPAN XL [Concomitant]
     Route: 048
  18. FLONASE [Concomitant]
     Route: 045
  19. ZYRTEC [Concomitant]
     Route: 048

REACTIONS (2)
  - INFECTED CYST [None]
  - STAPHYLOCOCCAL INFECTION [None]
